FAERS Safety Report 4823571-X (Version None)
Quarter: 2005Q4

REPORT INFORMATION
  Report Type: 
  Country: None (occurrence: None)
  Receive Date: 20051109
  Receipt Date: 20051017
  Transmission Date: 20060501
  Serious: Yes (Hospitalization)
  Sender: FDA-Public Use
  Company Number: JP-BRISTOL-MYERS SQUIBB COMPANY-13146469

PATIENT
  Age: 31 Year
  Sex: Female
  Weight: 52 kg

DRUGS (3)
  1. ENTECAVIR [Suspect]
     Indication: HEPATITIS B
     Route: 048
     Dates: start: 20041215
  2. FLONASE [Concomitant]
     Indication: RHINITIS ALLERGIC
     Dosage: 4 ML SOLUTION NASAL INHALER.
     Route: 045
     Dates: start: 20050511
  3. ITRIZOLE [Concomitant]
     Indication: NAIL TINEA
     Dosage: 50 MG CAPSULES; 4 X 2/DAY
     Route: 048
     Dates: start: 20050921, end: 20050927

REACTIONS (1)
  - MENIERE'S DISEASE [None]
